FAERS Safety Report 7116199-2 (Version None)
Quarter: 2010Q4

REPORT INFORMATION
  Report Type: 
  Country: None (occurrence: None)
  Receive Date: 20101122
  Receipt Date: 20101110
  Transmission Date: 20110411
  Serious: Yes (Death, Other)
  Sender: FDA-Public Use
  Company Number: ES-AMGEN-ESPSP2010004416

PATIENT

DRUGS (9)
  1. NPLATE [Suspect]
     Indication: IDIOPATHIC THROMBOCYTOPENIC PURPURA
     Dosage: 1 A?G/KG, UNK
     Dates: end: 20100101
  2. NPLATE [Suspect]
     Dosage: 5 A?G/KG, UNK
     Dates: end: 20100101
  3. PREDNISONE [Concomitant]
  4. FUROSEMIDE [Concomitant]
  5. AMIODARONE HCL [Concomitant]
  6. ALLOPURINOL [Concomitant]
  7. DIGOXIN [Concomitant]
  8. FENTANYL [Concomitant]
  9. CALCIUM [Concomitant]

REACTIONS (4)
  - GENERAL PHYSICAL HEALTH DETERIORATION [None]
  - PLATELET COUNT DECREASED [None]
  - SKIN ULCER [None]
  - VOMITING [None]
